FAERS Safety Report 4341240-X (Version None)
Quarter: 2004Q1

REPORT INFORMATION
  Report Type: 
  Country: None (occurrence: None)
  Receive Date: 20040329
  Receipt Date: 20040224
  Transmission Date: 20041129
  Serious: No
  Sender: FDA-Public Use
  Company Number: 04P-163-0251232-00

PATIENT
  Age: 59 Year
  Sex: Female

DRUGS (10)
  1. HUMIRA [Suspect]
     Indication: RHEUMATOID ARTHRITIS
     Dosage: 40 MG, 1 IN 2 WK, SUBCUTANEOUS
     Route: 058
     Dates: start: 20031101, end: 20040220
  2. TOPROL-XL [Concomitant]
  3. VICODIN [Concomitant]
  4. CLOPIDOGREL BISULFATE [Concomitant]
  5. ZOCOR [Concomitant]
  6. ASPIRIN [Concomitant]
  7. FOLIC ACID [Concomitant]
  8. ENALAPRIL MALEATE [Concomitant]
  9. ASCORBIC ACID [Concomitant]
  10. ERGOCALCIFEROL [Concomitant]

REACTIONS (2)
  - PNEUMONIA [None]
  - RASH [None]
